FAERS Safety Report 24860897 (Version 1)
Quarter: 2025Q1

REPORT INFORMATION
  Report Type: Spontaneous
  Country: GB (occurrence: GB)
  Receive Date: 20250120
  Receipt Date: 20250120
  Transmission Date: 20250409
  Serious: Yes (Other)
  Sender: AUROBINDO
  Company Number: GB-MHRA-MED-202501032342270130-MPNSD

PATIENT
  Age: 49 Year
  Sex: Female

DRUGS (1)
  1. METRONIDAZOLE [Suspect]
     Active Substance: METRONIDAZOLE
     Indication: Tooth abscess
     Dosage: 400 MILLIGRAM, 3 TIMES A DAY
     Route: 065
     Dates: start: 20241231

REACTIONS (5)
  - Wheezing [Not Recovered/Not Resolved]
  - Epistaxis [Not Recovered/Not Resolved]
  - Sneezing [Not Recovered/Not Resolved]
  - Cough [Unknown]
  - Pharyngeal paraesthesia [Unknown]

NARRATIVE: CASE EVENT DATE: 20250102
